FAERS Safety Report 19375689 (Version 1)
Quarter: 2021Q2

REPORT INFORMATION
  Report Type: Spontaneous
  Country: US (occurrence: US)
  Receive Date: 20210604
  Receipt Date: 20210604
  Transmission Date: 20210717
  Serious: Yes (Death, Life-Threatening)
  Sender: FDA-Public Use
  Company Number: US-FRESENIUS KABI-FK202105594

PATIENT
  Age: 9 Month

DRUGS (1)
  1. FAT EMULSION NOS [Suspect]
     Active Substance: EGG PHOSPHOLIPIDS\SAFFLOWER OIL\SOYBEAN OIL
     Indication: PARENTERAL NUTRITION
     Dosage: ADMINISTERED OVER THE COURSE OF APPROXIMATELY FOUR HOURS INSTEAD OF 20 HOURS DUE TO AN ADMINISTRATIO
     Route: 040

REACTIONS (6)
  - Lactic acidosis [Unknown]
  - Acute respiratory distress syndrome [Fatal]
  - Accidental overdose [Unknown]
  - Disseminated intravascular coagulation [Unknown]
  - Incorrect product administration duration [Unknown]
  - Device infusion issue [Unknown]
